FAERS Safety Report 10332164 (Version 1)
Quarter: 2014Q3

REPORT INFORMATION
  Report Type: Spontaneous
  Country: US (occurrence: None)
  Receive Date: 20140721
  Receipt Date: 20140721
  Transmission Date: 20150326
  Serious: Yes (Life-Threatening, Hospitalization, Other)
  Sender: FDA-Public Use
  Company Number: None

PATIENT
  Age: 65 Year
  Sex: Male
  Weight: 73.48 kg

DRUGS (9)
  1. MULTIPLE VITAMINS CENTRUM SILVER [Concomitant]
  2. ASPIRIN. [Concomitant]
     Active Substance: ASPIRIN
  3. LYRICA [Concomitant]
     Active Substance: PREGABALIN
  4. LISINOPRIL. [Concomitant]
     Active Substance: LISINOPRIL
  5. D3 VITAMIN [Concomitant]
  6. FENOFIBRATE. [Concomitant]
     Active Substance: FENOFIBRATE
  7. CLONAZEPAM. [Concomitant]
     Active Substance: CLONAZEPAM
  8. OXCARBAZEPINE. [Suspect]
     Active Substance: OXCARBAZEPINE
     Indication: TRIGEMINAL NEURALGIA
     Dosage: 300 MG ?60?1/2 TABLET TWICE A DAY FOR 1 WEEKS AND THEN 1 TABLET TWICE A DAY?MOUTH
     Route: 048
     Dates: start: 20140529, end: 20140602
  9. SIMVASTATIN. [Concomitant]
     Active Substance: SIMVASTATIN

REACTIONS (7)
  - Mood swings [None]
  - Dyspnoea [None]
  - Nightmare [None]
  - Psychological trauma [None]
  - Anxiety [None]
  - Fear of closed spaces [None]
  - Bronchitis [None]
